FAERS Safety Report 24757367 (Version 1)
Quarter: 2024Q4

REPORT INFORMATION
  Report Type: Spontaneous
  Country: US (occurrence: US)
  Receive Date: 20241220
  Receipt Date: 20241220
  Transmission Date: 20250115
  Serious: No
  Sender: RECORDATI
  Company Number: US-RECORDATI RARE DISEASE INC.-2024001454

PATIENT

DRUGS (1)
  1. SIGNIFOR LAR [Suspect]
     Active Substance: PASIREOTIDE PAMOATE
     Indication: Product used for unknown indication
     Dosage: 40 MG, (1ST INJECTION), HAD 8 INJECTIONS OVER 8 MONTHS
     Dates: start: 20230623

REACTIONS (4)
  - Acne [Unknown]
  - Hypoglycaemia [Unknown]
  - Diarrhoea [Unknown]
  - Hyperglycaemia [Unknown]
